FAERS Safety Report 4598105-8 (Version None)
Quarter: 2005Q1

REPORT INFORMATION
  Report Type: 
  Country: None (occurrence: None)
  Receive Date: 20050304
  Receipt Date: 20050228
  Transmission Date: 20050727
  Serious: Yes (Life-Threatening, Hospitalization)
  Sender: FDA-Public Use
  Company Number: PHFR2005GB01010

PATIENT
  Age: 48 Year
  Sex: Male

DRUGS (2)
  1. DICLOFENAC [Suspect]
     Indication: PAIN
     Dosage: UNK, UNK
     Route: 048
     Dates: start: 20050128, end: 20050128
  2. PARACETAMOL [Concomitant]
     Indication: PAIN
     Dosage: 1 G/DAY
     Route: 048
     Dates: start: 20050128

REACTIONS (4)
  - DYSPNOEA [None]
  - FLUSHING [None]
  - HYPOTENSION [None]
  - TACHYCARDIA [None]
